FAERS Safety Report 4863510-9 (Version None)
Quarter: 2005Q4

REPORT INFORMATION
  Report Type: 
  Country: None (occurrence: None)
  Receive Date: 20051222
  Receipt Date: 20050323
  Transmission Date: 20060501
  Serious: No
  Sender: FDA-Public Use
  Company Number: US-GLAXOSMITHKLINE-A0551045A

PATIENT
  Age: 38 Year
  Sex: Female

DRUGS (3)
  1. FLONASE [Suspect]
     Dosage: 3PUFF PER DAY
     Route: 045
  2. EYE DROPS [Concomitant]
  3. VITAMINS [Concomitant]

REACTIONS (2)
  - PAIN [None]
  - RASH [None]
